FAERS Safety Report 9409311 (Version 1)
Quarter: 2013Q2

REPORT INFORMATION
  Report Type: Spontaneous
  Country: GB (occurrence: GB)
  Receive Date: 20130408
  Receipt Date: 20130408
  Transmission Date: 20140414
  Serious: Yes (Other)
  Sender: FDA-Public Use
  Company Number: GER/UKI/13/0027375

PATIENT
  Age: 80 Year
  Sex: Male
  Weight: 59.42 kg

DRUGS (9)
  1. ATORVASTATIN (ATORVASTATIN) [Suspect]
     Indication: BLOOD CHOLESTEROL INCREASED
     Route: 048
     Dates: start: 20110321, end: 20120726
  2. EZETROL [Suspect]
     Indication: BLOOD CHOLESTEROL INCREASED
     Route: 048
     Dates: start: 20120726, end: 20120815
  3. ROSUVASTATIN [Suspect]
     Indication: BLOOD CHOLESTEROL INCREASED
     Route: 048
     Dates: start: 20100818, end: 20101222
  4. ZOCOR (SIMVASTATIN) [Suspect]
     Indication: BLOOD CHOLESTEROL INCREASED
     Route: 048
     Dates: start: 20070427
  5. ALLOPURINOL [Concomitant]
  6. AMLODIPINE (AMLODIPINE) [Concomitant]
  7. ASPIRIN (ACETYLSALICYLIC ACID) [Concomitant]
  8. GLICLAZIDE (GLICLAZIDE) [Concomitant]
  9. LOSARTAN (LOSARTAN POTASSIUM) [Concomitant]

REACTIONS (4)
  - Arthralgia [None]
  - Myalgia [None]
  - Muscle atrophy [None]
  - Weight decreased [None]
